FAERS Safety Report 6046625-1 (Version None)
Quarter: 2009Q1

REPORT INFORMATION
  Report Type: 
  Country: None (occurrence: None)
  Receive Date: 20090122
  Receipt Date: 20090115
  Transmission Date: 20090719
  Serious: Yes (Hospitalization, Other)
  Sender: FDA-Public Use
  Company Number: PHEH2008US11456

PATIENT
  Sex: Male

DRUGS (2)
  1. TEKTURNA [Suspect]
     Dosage: 300 MG, UNK
  2. EXFORGE [Suspect]
     Dosage: 10 MG AMLO/320 MG VAL

REACTIONS (5)
  - HIP SWELLING [None]
  - HYPERTENSION [None]
  - JOINT SWELLING [None]
  - RENAL DISORDER [None]
  - SWELLING FACE [None]
